FAERS Safety Report 20427750 (Version 2)
Quarter: 2022Q1

REPORT INFORMATION
  Report Type: Other
  Country: GB (occurrence: GB)
  Receive Date: 20220204
  Receipt Date: 20220216
  Transmission Date: 20220423
  Serious: Yes (Hospitalization, Other)
  Sender: FDA-Public Use
  Company Number: GB-CELLTRION INC.-2022GB000907

PATIENT

DRUGS (5)
  1. INFLIXIMAB [Suspect]
     Active Substance: INFLIXIMAB
     Indication: Colitis ulcerative
     Dosage: INFUSION OVER 2HRS (PHARMACEUTICAL DOSE FORM: 293)
     Route: 051
     Dates: start: 20210629, end: 20211201
  2. AZATHIOPRINE [Concomitant]
     Active Substance: AZATHIOPRINE
  3. BALSALAZIDE [Concomitant]
     Active Substance: BALSALAZIDE
  4. LANSOPRAZOLE [Concomitant]
     Active Substance: LANSOPRAZOLE
  5. PFIZER-BIONTECH COVID-19 VACCINE [Concomitant]
     Active Substance: TOZINAMERAN
     Indication: COVID-19 immunisation
     Dosage: DOSE 3C
     Dates: start: 20211123, end: 20211123

REACTIONS (2)
  - Palmoplantar pustulosis [Recovering/Resolving]
  - Psoriasis [Recovering/Resolving]

NARRATIVE: CASE EVENT DATE: 20211202
